FAERS Safety Report 19406812 (Version 1)
Quarter: 2021Q2

REPORT INFORMATION
  Report Type: Spontaneous
  Country: US (occurrence: US)
  Receive Date: 20210611
  Receipt Date: 20210611
  Transmission Date: 20210717
  Serious: No
  Sender: FDA-Public Use
  Company Number: US-GLAXOSMITHKLINE-US2021AMR123241

PATIENT
  Sex: Female

DRUGS (1)
  1. ZEJULA [Suspect]
     Active Substance: NIRAPARIB
     Indication: OVARIAN CANCER
     Dosage: 200 MG, QD

REACTIONS (5)
  - Red blood cell count decreased [Unknown]
  - Blood creatine increased [Unknown]
  - Blood glucose increased [Unknown]
  - Fatigue [Recovered/Resolved]
  - Constipation [Recovered/Resolved]
